FAERS Safety Report 5328245-7 (Version None)
Quarter: 2007Q2

REPORT INFORMATION
  Report Type: 
  Country: None (occurrence: None)
  Receive Date: 20070515
  Receipt Date: 20070515
  Transmission Date: 20071010
  Serious: Yes (Life-Threatening, Hospitalization)
  Sender: FDA-Public Use
  Company Number: None

PATIENT
  Sex: Male
  Weight: 115 kg

DRUGS (1)
  1. VANCOMYCIN HCL [Suspect]
     Indication: CELLULITIS
     Dosage: 1 GRAM EVERY 12 HOURS IV DRIP
     Route: 041

REACTIONS (8)
  - AGONAL DEATH STRUGGLE [None]
  - APNOEA [None]
  - CONVULSION [None]
  - DRUG DISPENSING ERROR [None]
  - INCORRECT DOSE ADMINISTERED [None]
  - LOSS OF CONSCIOUSNESS [None]
  - REBOUND EFFECT [None]
  - TOXICOLOGIC TEST ABNORMAL [None]
